FAERS Safety Report 9547785 (Version 1)
Quarter: 2013Q3

REPORT INFORMATION
  Report Type: Spontaneous
  Country: US (occurrence: None)
  Receive Date: 20130719
  Receipt Date: 20130719
  Transmission Date: 20140515
  Serious: Yes (Hospitalization)
  Sender: FDA-Public Use
  Company Number: 2012BAX003203

PATIENT
  Age: 54 Year
  Sex: Male
  Weight: 99.79 kg

DRUGS (11)
  1. CYCLOPHOSPHAMIDE [Suspect]
     Indication: CHRONIC LYMPHOCYTIC LEUKAEMIA
     Dosage: 63.7143 MG (1338 MG, 1 IN 3 WK), INTRVENOUS (NOT OTHERWISE SPECIFIED)
     Route: 042
     Dates: start: 20111018, end: 20120131
  2. CYCLOPHOSPHAMIDE [Suspect]
     Indication: LYMPHOCYTIC LEUKAEMIA
     Dosage: 63.7143 MG (1338 MG, 1 IN 3 WK), INTRVENOUS (NOT OTHERWISE SPECIFIED)
     Route: 042
     Dates: start: 20111018, end: 20120131
  3. CYCLOPHOSPHAMIDE [Suspect]
     Indication: CHRONIC LYMPHOCYTIC LEUKAEMIA
     Dosage: 63.7143 MG (1228 MG, 1 IN 21 D), INTRAVENOS
     Route: 042
     Dates: start: 20111018, end: 20120131
  4. RITUXAN [Suspect]
     Indication: CHRONIC LYMPHOCYTIC LEUKAEMIA
     Dosage: 18.0952 MG (800 MG, 1 IN 21 D), INTRAVENOUS)
     Route: 042
     Dates: start: 20111018, end: 20120131
  5. RITUXAN [Suspect]
     Indication: LEUKAEMIA
     Dosage: 18.0952 MG (800 MG, 1 IN 21 D), INTRAVENOUS)
     Route: 042
     Dates: start: 20111018, end: 20120131
  6. PENTOSTATIN [Suspect]
     Indication: CHRONIC LYMPHOCYTIC LEUKAEMIA
     Dosage: 0.4386 MG (6 MG, 1 IN 21 D), INTRAVENOUS
     Route: 042
     Dates: start: 20111018, end: 20111128
  7. PRILOSEC [Concomitant]
  8. TYLENOL (PARACETAMOL) [Concomitant]
  9. BENADRYL (DIPHENHYDRAMINE, PARCETAMOL, PHENYLPROPRANOLAMIDE HYDROCHLORIDE) [Concomitant]
  10. NEULASTA (PEGPILGRASTIM) [Concomitant]
  11. PALONOSETRON (PALONOSETRON) [Concomitant]

REACTIONS (1)
  - Colitis [None]
